FAERS Safety Report 6788419-5 (Version None)
Quarter: 2010Q2

REPORT INFORMATION
  Report Type: 
  Country: None (occurrence: None)
  Receive Date: 20100623
  Receipt Date: 20080307
  Transmission Date: 20101027
  Serious: Yes (Other)
  Sender: FDA-Public Use
  Company Number: US-PFIZER INC-2008022334

PATIENT
  Sex: Female
  Weight: 68 kg

DRUGS (3)
  1. GENOTROPIN [Suspect]
     Indication: GROWTH HORMONE DEFICIENCY
     Dates: start: 20030101, end: 20070101
  2. HYDROCORTISONE [Concomitant]
  3. FLORINEF [Concomitant]

REACTIONS (1)
  - BLOOD GLUCOSE INCREASED [None]
